FAERS Safety Report 15264403 (Version 1)
Quarter: 2018Q3

REPORT INFORMATION
  Report Type: Spontaneous
  Country: US (occurrence: US)
  Receive Date: 20180810
  Receipt Date: 20180810
  Transmission Date: 20181010
  Serious: Yes (Hospitalization)
  Sender: FDA-Public Use
  Company Number: US-LPDUSPRD-20181416

PATIENT
  Age: 83 Year
  Sex: Male

DRUGS (6)
  1. FLUOROURACIL. [Concomitant]
     Active Substance: FLUOROURACIL
     Dosage: UNKNOWN
     Route: 065
  2. LEUCOVORIN CALCIUM INJECTION (0517?8605?25) [Suspect]
     Active Substance: LEUCOVORIN CALCIUM
     Dosage: UNKNOWN
     Route: 065
  3. OXALIPLATIN INJECTION, USP (0517?1910?01) [Suspect]
     Active Substance: OXALIPLATIN
     Dosage: UNKNOWN
     Route: 065
  4. BEVACIZUMAB. [Concomitant]
     Active Substance: BEVACIZUMAB
     Dosage: UNKNOWN
     Route: 065
  5. DEXAMETHASONE SODIUM PHOSPHATE INJECTION, USP (4901?25) [Concomitant]
     Active Substance: DEXAMETHASONE SODIUM PHOSPHATE
     Dosage: UNKNOWN
     Route: 065
  6. PALONOSETRON. [Suspect]
     Active Substance: PALONOSETRON HYDROCHLORIDE
     Dosage: UNKNOWN
     Route: 065

REACTIONS (10)
  - Acute kidney injury [Recovered/Resolved]
  - Immune system disorder [Recovered/Resolved]
  - Intravascular haemolysis [Recovered/Resolved]
  - Microangiopathic haemolytic anaemia [Recovered/Resolved]
  - Leukocytosis [Recovered/Resolved]
  - Back pain [Recovered/Resolved]
  - Thrombotic microangiopathy [Recovered/Resolved]
  - Thrombocytopenia [Recovered/Resolved]
  - Chills [Recovered/Resolved]
  - Anaemia [Recovered/Resolved]
